FAERS Safety Report 15100428 (Version 1)
Quarter: 2018Q3

REPORT INFORMATION
  Report Type: Report from Study
  Country: IT (occurrence: IT)
  Receive Date: 20180703
  Receipt Date: 20180703
  Transmission Date: 20181010
  Serious: Yes (Other)
  Sender: FDA-Public Use
  Company Number: IT-TEVA-2018-IT-917649

PATIENT
  Age: 79 Year
  Sex: Male

DRUGS (10)
  1. RISPERIDONE. [Suspect]
     Active Substance: RISPERIDONE
     Dosage: 4 MILLIGRAM DAILY;
  2. DIGOXIN. [Concomitant]
     Active Substance: DIGOXIN
     Route: 065
  3. METHYLPREDNISOLONE. [Concomitant]
     Active Substance: METHYLPREDNISOLONE
     Route: 065
  4. METFORMIN [Concomitant]
     Active Substance: METFORMIN HYDROCHLORIDE
     Route: 065
  5. GLICLAZIDE [Concomitant]
     Active Substance: GLICLAZIDE
     Route: 065
  6. DEPAKIN [Suspect]
     Active Substance: VALPROATE SODIUM
     Dosage: 2 DOSAGE FORMS DAILY;
  7. ALLOPURINOL. [Concomitant]
     Active Substance: ALLOPURINOL
     Route: 065
  8. ESOMEPRAZOLE SODIUM. [Concomitant]
     Active Substance: ESOMEPRAZOLE SODIUM
     Route: 065
  9. DUTASTERIDE. [Concomitant]
     Active Substance: DUTASTERIDE
     Route: 065
  10. WARFARIN SODIUM. [Concomitant]
     Active Substance: WARFARIN SODIUM
     Route: 065

REACTIONS (1)
  - Sopor [Unknown]

NARRATIVE: CASE EVENT DATE: 20180103
